FAERS Safety Report 11348978 (Version 1)
Quarter: 2015Q3

REPORT INFORMATION
  Report Type: Report from Study
  Country: US (occurrence: US)
  Receive Date: 20150807
  Receipt Date: 20150807
  Transmission Date: 20151125
  Serious: Yes (Hospitalization)
  Sender: FDA-Public Use
  Company Number: US-ACTELION-A-US2015-121963

PATIENT
  Age: 39 Year
  Sex: Female

DRUGS (1)
  1. VELETRI [Suspect]
     Active Substance: EPOPROSTENOL
     Indication: PULMONARY ARTERIAL HYPERTENSION
     Dosage: 15.4 UNK, UNK
     Route: 042
     Dates: start: 20120327

REACTIONS (2)
  - Panic attack [Recovering/Resolving]
  - Urinary tract infection [Recovering/Resolving]
